FAERS Safety Report 7011275-7 (Version None)
Quarter: 2010Q3

REPORT INFORMATION
  Report Type: 
  Country: None (occurrence: None)
  Receive Date: 20100922
  Receipt Date: 20100922
  Transmission Date: 20110219
  Serious: No
  Sender: FDA-Public Use
  Company Number: None

PATIENT
  Age: 27 Year
  Sex: Female
  Weight: 95.2554 kg

DRUGS (1)
  1. CYMBALTA [Suspect]
     Indication: MAJOR DEPRESSION
     Dosage: 2 CAPSULES ONCE DAILY PO
     Route: 048
     Dates: start: 20060601, end: 20100912

REACTIONS (1)
  - WITHDRAWAL SYNDROME [None]
